FAERS Safety Report 25709460 (Version 2)
Quarter: 2025Q3

REPORT INFORMATION
  Report Type: Report from Study
  Country: US (occurrence: US)
  Receive Date: 20250821
  Receipt Date: 20250920
  Transmission Date: 20251020
  Serious: Yes (Death, Other)
  Sender: ALEXION PHARMACEUTICALS
  Company Number: US-AstraZeneca-CH-00932550A

PATIENT
  Age: 68 Year
  Sex: Male
  Weight: 83.9 kg

DRUGS (1)
  1. DAPAGLIFLOZIN [Suspect]
     Active Substance: DAPAGLIFLOZIN
     Route: 065

REACTIONS (11)
  - Hepatic enzyme abnormal [Fatal]
  - Blood sodium abnormal [Fatal]
  - Blood potassium abnormal [Fatal]
  - Hepatic failure [Unknown]
  - Renal failure [Unknown]
  - Cardiac arrest [Fatal]
  - Urinary tract infection [Unknown]
  - Fluid retention [Unknown]
  - Vomiting [Unknown]
  - Weight decreased [Unknown]
  - Loss of personal independence in daily activities [Unknown]

NARRATIVE: CASE EVENT DATE: 20250813
